FAERS Safety Report 4394483-3 (Version None)
Quarter: 2004Q3

REPORT INFORMATION
  Report Type: 
  Country: None (occurrence: None)
  Receive Date: 20040707
  Receipt Date: 20040625
  Transmission Date: 20050211
  Serious: Yes (Hospitalization)
  Sender: FDA-Public Use
  Company Number: 04P-163-0264850-00

PATIENT

DRUGS (6)
  1. HUMIRA [Suspect]
     Indication: RHEUMATOID ARTHRITIS
     Dosage: 40 MG, 1IN 2 WK, SUBCUTANEOUS
     Route: 058
     Dates: start: 20030601, end: 20031201
  2. HUMIRA [Suspect]
     Indication: RHEUMATOID ARTHRITIS
     Dosage: 40 MG, 1IN 2 WK, SUBCUTANEOUS
     Route: 058
     Dates: start: 20040201
  3. METHOTREXATE [Concomitant]
  4. ATENOLOL [Concomitant]
  5. CYPROHEPTADINE HYDROCHLORIDE [Concomitant]
  6. FOLIC ACID [Concomitant]

REACTIONS (3)
  - INFECTION [None]
  - LIMB INJURY [None]
  - THROMBOSIS [None]
